FAERS Safety Report 8168161-9 (Version None)
Quarter: 2012Q1

REPORT INFORMATION
  Report Type: 
  Country: None (occurrence: None)
  Receive Date: 20120227
  Receipt Date: 20120220
  Transmission Date: 20120608
  Serious: Yes (Death)
  Sender: FDA-Public Use
  Company Number: PHHY2012JP010470

PATIENT
  Age: 63 Year
  Sex: Female

DRUGS (6)
  1. LASIX [Concomitant]
  2. NEORAL [Suspect]
     Indication: LIVER TRANSPLANT
     Dosage: 5 ML, BID
     Route: 048
     Dates: start: 20111128, end: 20111130
  3. WARFARIN SODIUM [Concomitant]
  4. NEORAL [Suspect]
     Dosage: 0.5 ML, BID
     Route: 048
  5. PREDNISOLONE [Concomitant]
  6. AMLODIPINE [Concomitant]

REACTIONS (4)
  - HEPATIC FAILURE [None]
  - DISEASE PROGRESSION [None]
  - ACCIDENTAL OVERDOSE [None]
  - IMMUNOSUPPRESSANT DRUG LEVEL INCREASED [None]
